FAERS Safety Report 4546622-9 (Version None)
Quarter: 2005Q1

REPORT INFORMATION
  Report Type: 
  Country: None (occurrence: None)
  Receive Date: 20050103
  Receipt Date: 20041215
  Transmission Date: 20050727
  Serious: Yes (Other)
  Sender: FDA-Public Use
  Company Number: US_0412109242

PATIENT
  Sex: Female

DRUGS (4)
  1. GEMCITABINE HYDROCHLORIDE-IV (GEMCITABINE) [Suspect]
     Indication: BREAST CANCER
     Dosage: 1000 MG/M2 EVERY OTHER WEEK
  2. PACLITAXEL [Concomitant]
  3. TRASTUZUMAB [Concomitant]
  4. DEXAMETHASONE [Concomitant]

REACTIONS (2)
  - LEUKOPENIA [None]
  - NEUROTOXICITY [None]
